FAERS Safety Report 10264874 (Version 9)
Quarter: 2015Q3

REPORT INFORMATION
  Report Type: Report from Study
  Country: GR (occurrence: GR)
  Receive Date: 20140624
  Receipt Date: 20150716
  Transmission Date: 20151125
  Serious: Yes (Other)
  Sender: FDA-Public Use
  Company Number: AEGR000440

PATIENT

DRUGS (9)
  1. SOTALOL. [Concomitant]
     Active Substance: SOTALOL
     Indication: ARRHYTHMIA
     Dosage: 0.5 DF, TID
     Dates: start: 201311
  2. LOJUXTA [Suspect]
     Active Substance: LOMITAPIDE MESYLATE
     Indication: TYPE IIA HYPERLIPIDAEMIA
     Dosage: 5 MG, UNK
     Dates: start: 20140320, end: 20140417
  3. LOJUXTA [Suspect]
     Active Substance: LOMITAPIDE MESYLATE
     Dosage: 20 MG, UNK
     Dates: start: 20140820, end: 20141109
  4. EZETROL [Concomitant]
     Active Substance: EZETIMIBE
     Indication: PRODUCT USED FOR UNKNOWN INDICATION
     Dosage: 10 MG, QD
  5. LOJUXTA [Suspect]
     Active Substance: LOMITAPIDE MESYLATE
     Dosage: 20 MG, 3 DAYS PER WEEK
     Dates: start: 20141110
  6. SINTROM [Concomitant]
     Active Substance: ACENOCOUMAROL
     Indication: AORTIC VALVE REPLACEMENT
     Dosage: 3 DAYS TREATMENT, 1X 1/2 - 1/4 - 3/4
     Dates: start: 2007
  7. LOJUXTA [Suspect]
     Active Substance: LOMITAPIDE MESYLATE
     Dosage: 10 MG, QD
     Dates: start: 20140417, end: 20140819
  8. LOJUXTA [Suspect]
     Active Substance: LOMITAPIDE MESYLATE
     Dosage: 10 MG, 4 DAYS PER WEEK
     Dates: start: 20141110
  9. CRESTOR [Concomitant]
     Active Substance: ROSUVASTATIN CALCIUM
     Indication: PRODUCT USED FOR UNKNOWN INDICATION
     Dosage: 40 MG, QD

REACTIONS (4)
  - Hepatic steatosis [Recovering/Resolving]
  - Intentional product misuse [Unknown]
  - Alanine aminotransferase increased [Recovered/Resolved]
  - Aspartate aminotransferase increased [Recovered/Resolved]

NARRATIVE: CASE EVENT DATE: 20140423
